FAERS Safety Report 18925994 (Version 1)
Quarter: 2021Q1

REPORT INFORMATION
  Report Type: Spontaneous
  Country: US (occurrence: US)
  Receive Date: 20210222
  Receipt Date: 20210222
  Transmission Date: 20210420
  Serious: Yes (Hospitalization, Other)
  Sender: FDA-Public Use
  Company Number: US-AUROBINDO-AUR-APL-2021-006756

PATIENT
  Age: 66 Year
  Sex: Male

DRUGS (5)
  1. LORAZEPAM. [Suspect]
     Active Substance: LORAZEPAM
     Indication: MAJOR DEPRESSION
     Dosage: 1 MILLIGRAM, ONCE A DAY (EVERY MORNING)
     Route: 065
  2. LORAZEPAM. [Suspect]
     Active Substance: LORAZEPAM
     Indication: MAJOR DEPRESSION
     Dosage: 2 MILLIGRAM, ONCE A DAY (EVERY EVENING)
     Route: 065
  3. FLUOXETINE [Concomitant]
     Active Substance: FLUOXETINE HYDROCHLORIDE
     Indication: MAJOR DEPRESSION
     Dosage: 20 MILLIGRAM, ONCE A DAY
     Route: 065
  4. ZONISAMIDE. [Concomitant]
     Active Substance: ZONISAMIDE
     Indication: MAJOR DEPRESSION
     Dosage: 300 MILLIGRAM, ONCE A DAY (EVERY NIGHTLY)
     Route: 065
  5. LEVETIRACETAM. [Concomitant]
     Active Substance: LEVETIRACETAM
     Indication: MAJOR DEPRESSION
     Dosage: 750 MILLIGRAM, ONCE A DAY (EVERY NIGHTLY (EXTENDED?RELEASE))
     Route: 065

REACTIONS (2)
  - Cognitive disorder [Unknown]
  - Condition aggravated [Unknown]
